FAERS Safety Report 25643128 (Version 1)
Quarter: 2025Q3

REPORT INFORMATION
  Report Type: Spontaneous
  Country: US (occurrence: US)
  Receive Date: 20250805
  Receipt Date: 20250805
  Transmission Date: 20251021
  Serious: No
  Sender: JOHNSON AND JOHNSON
  Company Number: US-JNJFOC-20250739481

PATIENT
  Age: 68 Year
  Sex: Male

DRUGS (1)
  1. XARELTO [Suspect]
     Active Substance: RIVAROXABAN
     Indication: Pulmonary embolism
     Route: 048

REACTIONS (11)
  - Confusional state [Unknown]
  - Circadian rhythm sleep disorder [Unknown]
  - Tension [Unknown]
  - Sensory processing sensitivity [Unknown]
  - Irritability [Unknown]
  - Nervousness [Unknown]
  - Incorrect dose administered [Unknown]
  - Tooth extraction [Unknown]
  - Inappropriate schedule of product administration [Unknown]
  - Feeling abnormal [Unknown]
  - Wrong technique in product usage process [Unknown]

NARRATIVE: CASE EVENT DATE: 20250101
